FAERS Safety Report 9735877 (Version 2)
Quarter: 2013Q4

REPORT INFORMATION
  Report Type: Spontaneous
  Country: US (occurrence: US)
  Receive Date: 20131206
  Receipt Date: 20131206
  Transmission Date: 20140711
  Serious: No
  Sender: FDA-Public Use
  Company Number: US-GILEAD-2009-0023994

PATIENT
  Sex: Male
  Weight: 79.83 kg

DRUGS (12)
  1. LETAIRIS [Suspect]
     Indication: PULMONARY ARTERIAL HYPERTENSION
     Route: 048
     Dates: start: 20090812, end: 20090930
  2. PREVACID [Concomitant]
  3. FUROSEMIDE [Concomitant]
  4. NOVOLIN R [Concomitant]
  5. AMBIEN [Concomitant]
  6. VICODIN [Concomitant]
  7. LACTULOSE [Concomitant]
  8. LANTUS [Concomitant]
  9. PLAVIX [Concomitant]
  10. FOLIC ACID [Concomitant]
  11. SENSIPAR [Concomitant]
  12. VENTAVIS [Concomitant]
     Dates: start: 20090615

REACTIONS (4)
  - Dizziness [Unknown]
  - Malaise [Unknown]
  - Hepatomegaly [Unknown]
  - Abdominal pain [Unknown]
